FAERS Safety Report 9702731 (Version 2)
Quarter: 2013Q4

REPORT INFORMATION
  Report Type: Spontaneous
  Country: CH (occurrence: None)
  Receive Date: 20131120
  Receipt Date: 20131202
  Transmission Date: 20140711
  Serious: Yes (Other)
  Sender: FDA-Public Use
  Company Number: 20130657

PATIENT
  Age: 44 Year
  Sex: Female
  Weight: 54 kg

DRUGS (1)
  1. FERINJECT [Suspect]
     Indication: PRODUCT USED FOR UNKNOWN INDICATION
     Route: 042
     Dates: start: 20131011, end: 20131011

REACTIONS (15)
  - Product used for unknown indication [None]
  - Wrong technique in drug usage process [None]
  - Chest discomfort [None]
  - Blood pressure decreased [None]
  - Cardiovascular disorder [None]
  - Nausea [None]
  - Hot flush [None]
  - Headache [None]
  - Fatigue [None]
  - Movement disorder [None]
  - Night sweats [None]
  - Vertigo [None]
  - Fatigue [None]
  - Abdominal pain [None]
  - Toxicity to various agents [None]
